FAERS Safety Report 16908298 (Version 1)
Quarter: 2019Q4

REPORT INFORMATION
  Report Type: Spontaneous
  Country: GB (occurrence: GB)
  Receive Date: 20191011
  Receipt Date: 20191011
  Transmission Date: 20200122
  Serious: Yes (Other)
  Sender: FDA-Public Use
  Company Number: GB-MYLANLABS-2019M1094731

PATIENT
  Age: 75 Year
  Sex: Male

DRUGS (6)
  1. CARBIMAZOLE [Suspect]
     Active Substance: CARBIMAZOLE
     Dosage: 40 MG, QD
     Route: 065
  2. CARBIMAZOLE [Suspect]
     Active Substance: CARBIMAZOLE
     Dosage: 60 MG, QD
  3. PREDNISOLONE. [Concomitant]
     Active Substance: PREDNISOLONE
     Indication: HYPERTHYROIDISM
     Dosage: 40 MG, QD
  4. CARBIMAZOLE [Suspect]
     Active Substance: CARBIMAZOLE
     Indication: HYPERTHYROIDISM
     Dosage: 10 MG, QD
  5. CARBIMAZOLE [Suspect]
     Active Substance: CARBIMAZOLE
     Dosage: 20 MG, QD
  6. AMIODARONE [Suspect]
     Active Substance: AMIODARONE
     Indication: VENTRICULAR TACHYCARDIA
     Dosage: 200 MG,QD
     Route: 048

REACTIONS (9)
  - Hyperthyroidism [Recovered/Resolved with Sequelae]
  - Palpitations [Recovered/Resolved]
  - Therapeutic product effect incomplete [Unknown]
  - Treatment failure [Unknown]
  - Thyroiditis [Unknown]
  - Toxic nodular goitre [Recovered/Resolved with Sequelae]
  - Weight decreased [Unknown]
  - Goitre [Recovered/Resolved with Sequelae]
  - Hypothyroidism [Recovered/Resolved with Sequelae]
